FAERS Safety Report 9438726 (Version 1)
Quarter: 2013Q3

REPORT INFORMATION
  Report Type: Report from Study
  Country: US (occurrence: US)
  Receive Date: 20130802
  Receipt Date: 20130802
  Transmission Date: 20140515
  Serious: Yes (Hospitalization)
  Sender: FDA-Public Use
  Company Number: US-ABBOTT-13P-163-1093530-00

PATIENT
  Age: 62 Year
  Sex: Female

DRUGS (9)
  1. HUMIRA [Suspect]
     Indication: CROHN^S DISEASE
     Dates: start: 20130422
  2. SULFA BASED MEDICATION [Suspect]
     Indication: LOWER RESPIRATORY TRACT INFECTION
     Dates: start: 20130607
  3. CELEXA [Concomitant]
     Indication: NERVOUSNESS
     Route: 048
  4. LOMOTIL [Concomitant]
     Indication: DIARRHOEA
     Route: 048
  5. LOMOTIL [Concomitant]
     Indication: PELVIC POUCH PROCEDURE
  6. LEVOTHYROXINE [Concomitant]
     Indication: THYROID DISORDER
     Route: 048
  7. LISINOPRIL [Concomitant]
     Indication: HYPERTENSION
     Route: 048
  8. NEXIUM [Concomitant]
     Indication: PRODUCT USED FOR UNKNOWN INDICATION
     Route: 048
  9. IBUPROFEN [Concomitant]
     Indication: PRODUCT USED FOR UNKNOWN INDICATION
     Route: 048

REACTIONS (15)
  - Blood potassium decreased [Not Recovered/Not Resolved]
  - Cough [Not Recovered/Not Resolved]
  - Dysphonia [Not Recovered/Not Resolved]
  - Respiratory tract congestion [Not Recovered/Not Resolved]
  - Wheezing [Not Recovered/Not Resolved]
  - Lower respiratory tract infection [Recovering/Resolving]
  - Crohn^s disease [Unknown]
  - Diarrhoea [Unknown]
  - Chest pain [Not Recovered/Not Resolved]
  - Thyroid function test abnormal [Not Recovered/Not Resolved]
  - Upper respiratory tract infection [Not Recovered/Not Resolved]
  - Productive cough [Not Recovered/Not Resolved]
  - Mucosal discolouration [Not Recovered/Not Resolved]
  - Infected bites [Not Recovered/Not Resolved]
  - Wound infection staphylococcal [Not Recovered/Not Resolved]
